FAERS Safety Report 6941394-2 (Version None)
Quarter: 2010Q3

REPORT INFORMATION
  Report Type: 
  Country: None (occurrence: None)
  Receive Date: 20100825
  Receipt Date: 20100812
  Transmission Date: 20110219
  Serious: Yes (Other)
  Sender: FDA-Public Use
  Company Number: PHHY2010US27762

PATIENT
  Sex: Female
  Weight: 56.5 kg

DRUGS (16)
  1. EXJADE [Suspect]
     Indication: IRON METABOLISM DISORDER
     Dosage: 1375 MG, DAILY
     Route: 048
     Dates: start: 20100201
  2. AGGRENOX [Concomitant]
     Dosage: 1 TWICE DAILY
  3. FUROSEMIDE [Concomitant]
     Dosage: 60 MG
  4. FUROSEMIDE [Concomitant]
     Dosage: 40 MG
  5. DARVOCET-N 100 [Concomitant]
     Indication: PAIN
     Dosage: 100, ONE EVERY FOUR HOURS
     Route: 048
  6. ROCALTROL [Concomitant]
     Dosage: 0.25 MCG DAILY
  7. POTASSIUM CHLORIDE [Concomitant]
     Dosage: 10 MEG DAILY
  8. RANEXA [Concomitant]
     Dosage: 500 MG TWICE DAILY
  9. CALCIUM CARBONATE [Concomitant]
  10. BUSPAR [Concomitant]
     Dosage: 15 MG
  11. LORCET-HD [Concomitant]
     Indication: PAIN
     Dosage: 5 MG DAILY
  12. CITALOPRAM HYDROBROMIDE [Concomitant]
     Dosage: 10 MG, H.S
  13. MILK OF MAGNESIA TAB [Concomitant]
     Dosage: 1600 MG H.S
  14. ASCORBIC ACID [Concomitant]
     Dosage: 500 MG
  15. XALATAN [Concomitant]
     Dosage: ONE DROP TO BOTH EYES DAILY
  16. LEVOTHYROXINE [Concomitant]
     Dosage: 135 MCG DAILY

REACTIONS (7)
  - ANGIOPATHY [None]
  - DERMATITIS [None]
  - DYSPNOEA EXERTIONAL [None]
  - OEDEMA PERIPHERAL [None]
  - RENAL FAILURE [None]
  - RENAL FAILURE CHRONIC [None]
  - URINARY TRACT INFECTION [None]
